FAERS Safety Report 5705183-9 (Version None)
Quarter: 2008Q2

REPORT INFORMATION
  Report Type: 
  Country: None (occurrence: None)
  Receive Date: 20080410
  Receipt Date: 20080401
  Transmission Date: 20081010
  Serious: Yes (Hospitalization)
  Sender: FDA-Public Use
  Company Number: 232850K07USA

PATIENT
  Age: 53 Year
  Sex: Female
  Weight: 95.2554 kg

DRUGS (7)
  1. REBIF [Suspect]
     Indication: MULTIPLE SCLEROSIS
     Dosage: 44 MCG, 3 IN 1 WEEKS, SUBCUTANEOUS; 22 MCG, 3 IN 1 WEEKS, SUBCUTANEOUS; 44 MCG
     Route: 058
     Dates: start: 20031201, end: 20071201
  2. REBIF [Suspect]
     Indication: MULTIPLE SCLEROSIS
     Dosage: 44 MCG, 3 IN 1 WEEKS, SUBCUTANEOUS; 22 MCG, 3 IN 1 WEEKS, SUBCUTANEOUS; 44 MCG
     Route: 058
     Dates: start: 20080101, end: 20080301
  3. REBIF [Suspect]
     Indication: MULTIPLE SCLEROSIS
     Dosage: 44 MCG, 3 IN 1 WEEKS, SUBCUTANEOUS; 22 MCG, 3 IN 1 WEEKS, SUBCUTANEOUS; 44 MCG
     Route: 058
     Dates: start: 20080401
  4. CYTOMEL [Concomitant]
  5. FOLIC ACID [Concomitant]
  6. VITAMIN D [Concomitant]
  7. ADVIL [Concomitant]

REACTIONS (6)
  - ASTHENIA [None]
  - COLITIS ULCERATIVE [None]
  - DEPRESSION [None]
  - INJECTION SITE PAIN [None]
  - TREATMENT NONCOMPLIANCE [None]
  - WEIGHT DECREASED [None]
